FAERS Safety Report 10672709 (Version 1)
Quarter: 2014Q4

REPORT INFORMATION
  Report Type: Spontaneous
  Country: US (occurrence: US)
  Receive Date: 20141223
  Receipt Date: 20141223
  Transmission Date: 20150529
  Serious: Yes (Hospitalization, Other)
  Sender: FDA-Public Use
  Company Number: US-ASTRAZENECA-2014SE96238

PATIENT
  Age: 80 Year
  Sex: Male
  Weight: 124.7 kg

DRUGS (8)
  1. CALCIUM [Concomitant]
     Active Substance: CALCIUM
  2. OMEGA 3 [Concomitant]
     Active Substance: OMEGA-3 FATTY ACIDS
  3. PRILOSEC OTC [Suspect]
     Active Substance: OMEPRAZOLE MAGNESIUM
     Indication: HIATUS HERNIA
     Route: 048
  4. SUPPLEMENTS [Concomitant]
     Active Substance: UNSPECIFIED INGREDIENT
  5. PRILOSEC OTC [Suspect]
     Active Substance: OMEPRAZOLE MAGNESIUM
     Indication: HIATUS HERNIA
     Route: 048
  6. GNC MEGA VITAMIN [Concomitant]
  7. POTASSIUM [Concomitant]
     Active Substance: POTASSIUM
  8. COQ10 [Concomitant]
     Active Substance: UBIDECARENONE

REACTIONS (5)
  - Large intestinal haemorrhage [Unknown]
  - Epistaxis [Recovered/Resolved]
  - Intentional product misuse [Unknown]
  - Rectal haemorrhage [Recovered/Resolved]
  - Hiatus hernia [Unknown]
